FAERS Safety Report 8081582-8 (Version None)
Quarter: 2012Q1

REPORT INFORMATION
  Report Type: 
  Country: None (occurrence: None)
  Receive Date: 20120130
  Receipt Date: 20120129
  Transmission Date: 20120608
  Serious: Yes (Other)
  Sender: FDA-Public Use
  Company Number: CN-ROCHE-1034584

PATIENT
  Age: 49 Year
  Sex: Female
  Weight: 59 kg

DRUGS (4)
  1. HERCEPTIN [Suspect]
     Indication: BREAST CANCER
     Route: 041
     Dates: start: 20111206
  2. TRADITIONAL CHINESE MEDICINE (UNK INGREDIENTS) [Concomitant]
     Route: 048
  3. TRADITIONAL CHINESE MEDICINE (UNK INGREDIENTS) [Suspect]
     Indication: BREAST CANCER
     Route: 048
  4. CHINESE TRADITIONAL MEDICINE [Concomitant]
     Indication: BREAST CANCER
     Route: 048

REACTIONS (8)
  - TRANSAMINASES INCREASED [None]
  - ABDOMINAL DISCOMFORT [None]
  - CHROMATURIA [None]
  - BLOOD BILIRUBIN INCREASED [None]
  - WHITE BLOOD CELL COUNT DECREASED [None]
  - ERUCTATION [None]
  - PYREXIA [None]
  - CHEST DISCOMFORT [None]
